FAERS Safety Report 7747019-0 (Version None)
Quarter: 2011Q3

REPORT INFORMATION
  Report Type: 
  Country: None (occurrence: None)
  Receive Date: 20110913
  Receipt Date: 20110907
  Transmission Date: 20111222
  Serious: Yes (Other)
  Sender: FDA-Public Use
  Company Number: PHEH2011US03642

PATIENT
  Sex: Female

DRUGS (16)
  1. VENTOLIN HFA [Concomitant]
     Dosage: UNK UKN, UNK
  2. ENALAPRIL MALEATE [Concomitant]
     Dosage: 10 MG, QD
  3. AMARYL [Concomitant]
     Dosage: 4 MG, BID
  4. OMEPRAZOLE [Concomitant]
     Dosage: 40 MG, QD
  5. JANUVIA [Concomitant]
     Dosage: 50 MG, QD
  6. PULMICORT [Concomitant]
     Dosage: 180 UG, BID
  7. GILENYA [Suspect]
     Dosage: 0.5 MG, QD
     Route: 048
  8. ZYRTEC [Concomitant]
     Dosage: 10 MG, QD
  9. CARDURA [Concomitant]
     Dosage: 2 MG, QD
  10. MULTI-VITAMIN [Concomitant]
     Dosage: UNK UKN, UNK
  11. VITAMIN D [Concomitant]
     Dosage: 1000 IU, UNK
  12. FLAXSEED OIL [Concomitant]
     Dosage: UNK UKN, UNK
  13. CYMBALTA [Concomitant]
     Dosage: 60 MG, QD
  14. ATIVAN [Concomitant]
     Dosage: 0.5 MG, PRN
  15. ASPIRIN [Concomitant]
     Dosage: 81 MG, UNK
  16. MEVACOR [Concomitant]
     Dosage: 30 MG, QD

REACTIONS (1)
  - URINARY TRACT INFECTION [None]
